FAERS Safety Report 21700766 (Version 1)
Quarter: 2022Q4

REPORT INFORMATION
  Report Type: Spontaneous
  Country: IE (occurrence: IE)
  Receive Date: 20221208
  Receipt Date: 20221208
  Transmission Date: 20230112
  Serious: Yes (Death, Life-Threatening, Hospitalization, Other)
  Sender: FDA-Public Use
  Company Number: None

PATIENT
  Age: 73 Year
  Sex: Female
  Weight: 60 kg

DRUGS (11)
  1. ATORVASTATIN [Suspect]
     Active Substance: ATORVASTATIN
     Indication: Product used for unknown indication
     Dosage: 20 MILLIGRAM DAILY; 20 MG DAILY, DURATION  7 DAYS - BUT NOTE USUALLY TAKING 40 MG
     Dates: start: 20221003, end: 20221009
  2. JANUVIA [Suspect]
     Active Substance: SITAGLIPTIN PHOSPHATE
     Indication: Product used for unknown indication
     Dosage: 100 MILLIGRAM DAILY; 100 MG DAILY
     Dates: start: 20221003, end: 20221009
  3. CETIRIZINE HYDROCHLORIDE [Suspect]
     Active Substance: CETIRIZINE HYDROCHLORIDE
     Indication: Product used for unknown indication
     Dosage: 10 MILLIGRAM DAILY; 10MG DAILY
     Dates: start: 20221003, end: 20221009
  4. GLICLAZIDE [Suspect]
     Active Substance: GLICLAZIDE
     Indication: Product used for unknown indication
     Dosage: 160 MG
     Dates: start: 20221003, end: 20221009
  5. EPILIM [Suspect]
     Active Substance: VALPROATE SODIUM
     Indication: Product used for unknown indication
     Dates: start: 20221003, end: 20221009
  6. CALCIUM\CHOLECALCIFEROL [Suspect]
     Active Substance: CALCIUM\CHOLECALCIFEROL
     Indication: Product used for unknown indication
     Dosage: STRENGTH: 500 MG/400 IU , BD, DURATION 7 DAYS
     Dates: start: 20221003, end: 20221009
  7. DAPAGLIFLOZIN [Suspect]
     Active Substance: DAPAGLIFLOZIN
     Indication: Product used for unknown indication
     Dosage: 10 MILLIGRAM DAILY; 10 MG DAILY
     Dates: start: 20221003, end: 20221009
  8. NUPRIN [Suspect]
     Active Substance: IBUPROFEN
     Indication: Product used for unknown indication
     Dosage: 75 MILLIGRAM DAILY; 75MG DAILY
     Dates: start: 20221003, end: 20221009
  9. MIRABEGRON [Suspect]
     Active Substance: MIRABEGRON
     Indication: Product used for unknown indication
     Dosage: 50 MILLIGRAM DAILY; 50MG DAILY
     Dates: start: 20221003, end: 20221009
  10. CLONAZEPAM [Suspect]
     Active Substance: CLONAZEPAM
     Indication: Product used for unknown indication
     Dosage: 1 MILLIGRAM DAILY; 1 MG AT NIGHT- NOT ALPRAZOLAM AS ON USUAL LIST, DURATION 7 DAYS
     Dates: start: 20221003, end: 20221009
  11. LANSOPRAZOLE [Concomitant]
     Active Substance: LANSOPRAZOLE
     Indication: Product used for unknown indication
     Dosage: 30 MILLIGRAM DAILY; 30 MG DAILY - THE SAME AS HER USUAL LIST

REACTIONS (7)
  - Hypoglycaemia [Fatal]
  - Wrong patient received product [Fatal]
  - Seizure [Fatal]
  - Magnetic resonance imaging head abnormal [Fatal]
  - Rhabdomyolysis [Fatal]
  - Hypoxic-ischaemic encephalopathy [Fatal]
  - Pneumonia aspiration [Fatal]

NARRATIVE: CASE EVENT DATE: 20221009
